FAERS Safety Report 9471601 (Version 1)
Quarter: 2013Q3

REPORT INFORMATION
  Report Type: Spontaneous
  Country: IT (occurrence: None)
  Receive Date: 20130819
  Receipt Date: 20130819
  Transmission Date: 20140515
  Serious: Yes (Hospitalization)
  Sender: FDA-Public Use
  Company Number: B0915251A

PATIENT
  Age: 3 Year
  Sex: Male

DRUGS (2)
  1. BECLOMETHASONE DIPROPIONATE [Suspect]
     Indication: UPPER RESPIRATORY TRACT INFECTION
  2. CEFIXIME [Suspect]

REACTIONS (1)
  - Stevens-Johnson syndrome [None]
